FAERS Safety Report 9347189 (Version 1)
Quarter: 2013Q2

REPORT INFORMATION
  Report Type: Spontaneous
  Country: GB (occurrence: GB)
  Receive Date: 20130613
  Receipt Date: 20130613
  Transmission Date: 20140414
  Serious: Yes (Other)
  Sender: FDA-Public Use
  Company Number: GB-PFIZER INC-2013173739

PATIENT
  Age: 82 Year
  Sex: Female

DRUGS (2)
  1. XALATAN [Suspect]
     Indication: GLAUCOMA
     Dosage: UNK, 1X/DAY AT NIGHT
     Route: 047
     Dates: start: 20130401
  2. BETOPTIC [Concomitant]
     Dosage: ONE GTT, 2X/DAY
     Route: 047
     Dates: start: 201212

REACTIONS (2)
  - Eye ulcer [Not Recovered/Not Resolved]
  - Eye pain [Not Recovered/Not Resolved]
